FAERS Safety Report 10147487 (Version 1)
Quarter: 2014Q2

REPORT INFORMATION
  Report Type: Report from Study
  Country: CO (occurrence: CO)
  Receive Date: 20140501
  Receipt Date: 20140501
  Transmission Date: 20141212
  Serious: Yes (Hospitalization)
  Sender: FDA-Public Use
  Company Number: CO-ABBVIE-14P-036-1231384-00

PATIENT
  Age: 75 Year
  Sex: Male
  Weight: 62 kg

DRUGS (1)
  1. HUMIRA [Suspect]
     Indication: PSORIASIS
     Route: 058
     Dates: start: 20100302, end: 20140409

REACTIONS (5)
  - Dizziness [Recovering/Resolving]
  - Ear pain [Recovering/Resolving]
  - Vomiting [Recovering/Resolving]
  - Psoriasis [Recovering/Resolving]
  - Herpes zoster [Recovering/Resolving]
